FAERS Safety Report 13942264 (Version 1)
Quarter: 2017Q3

REPORT INFORMATION
  Report Type: Spontaneous
  Country: US (occurrence: None)
  Receive Date: 20170907
  Receipt Date: 20170907
  Transmission Date: 20171127
  Serious: Yes (Hospitalization)
  Sender: FDA-Public Use
  Company Number: None

PATIENT
  Age: 68 Year
  Sex: Female

DRUGS (15)
  1. FLUCONAZOLE. [Concomitant]
     Active Substance: FLUCONAZOLE
  2. FUROSEMIDE. [Concomitant]
     Active Substance: FUROSEMIDE
  3. SYNTHROID [Concomitant]
     Active Substance: LEVOTHYROXINE SODIUM
  4. PREDNISONE. [Concomitant]
     Active Substance: PREDNISONE
  5. POTASSIUM [Concomitant]
     Active Substance: POTASSIUM
  6. SPRYCEL [Suspect]
     Active Substance: DASATINIB
     Indication: LEUKOCYTOSIS
     Route: 048
     Dates: start: 20170607
  7. VENTOLIN [Concomitant]
     Active Substance: ALBUTEROL SULFATE
  8. LEVOFLOXACIN. [Concomitant]
     Active Substance: LEVOFLOXACIN
  9. DOXYCYCL HYC 100 MG GENERIC FOR VIBRA TAB 100 MG [Concomitant]
     Active Substance: DOXYCYCLINE HYCLATE
  10. ALPRAZOLAM. [Concomitant]
     Active Substance: ALPRAZOLAM
  11. OXYCODONE [Concomitant]
     Active Substance: OXYCODONE
  12. GABAPENTIN. [Concomitant]
     Active Substance: GABAPENTIN
  13. ACYCLOVIR. [Concomitant]
     Active Substance: ACYCLOVIR
  14. SMZ/TMP [Concomitant]
     Active Substance: SULFAMETHOXAZOLE\TRIMETHOPRIM
  15. ALLOPURINOL. [Concomitant]
     Active Substance: ALLOPURINOL

REACTIONS (2)
  - Bacterial infection [None]
  - Drug ineffective [None]

NARRATIVE: CASE EVENT DATE: 2017
